FAERS Safety Report 5051009-9 (Version None)
Quarter: 2006Q3

REPORT INFORMATION
  Report Type: 
  Country: None (occurrence: None)
  Receive Date: 20060714
  Receipt Date: 20060706
  Transmission Date: 20061208
  Serious: Yes (Hospitalization)
  Sender: FDA-Public Use
  Company Number: 2006AP03115

PATIENT
  Age: 26783 Day

DRUGS (10)
  1. SEROQUEL [Suspect]
     Indication: INTERMITTENT EXPLOSIVE DISORDER
     Route: 048
     Dates: start: 20050926, end: 20060502
  2. CHLOMIPRAMINE HYDROCHLORIDE [Suspect]
     Route: 048
     Dates: start: 20051118, end: 20060502
  3. OGEN [Suspect]
     Route: 048
     Dates: start: 20060316, end: 20060502
  4. ATENOLOL [Suspect]
     Route: 048
     Dates: start: 20050926, end: 20060502
  5. OLANZAPINE [Suspect]
     Indication: INTERMITTENT EXPLOSIVE DISORDER
     Dates: start: 20050926, end: 20060502
  6. EPILIM [Suspect]
     Indication: INTERMITTENT EXPLOSIVE DISORDER
     Dates: start: 20050626, end: 20060502
  7. LASIX [Suspect]
     Indication: OEDEMA
     Dates: start: 20050926, end: 20060502
  8. LASIX [Suspect]
     Dates: start: 20050926, end: 20060502
  9. ALDACTONE [Suspect]
     Indication: OEDEMA
     Route: 048
     Dates: start: 20050926, end: 20060502
  10. ALDACTONE [Suspect]
     Route: 048
     Dates: start: 20050926, end: 20060502

REACTIONS (7)
  - DYSPHAGIA [None]
  - HYPERGLYCAEMIA [None]
  - INCONTINENCE [None]
  - MOBILITY DECREASED [None]
  - OEDEMA [None]
  - PSYCHOMOTOR SKILLS IMPAIRED [None]
  - PYREXIA [None]
